FAERS Safety Report 19459352 (Version 1)
Quarter: 2021Q2

REPORT INFORMATION
  Report Type: Spontaneous
  Country: US (occurrence: US)
  Receive Date: 20210624
  Receipt Date: 20210624
  Transmission Date: 20210717
  Serious: No
  Sender: FDA-Public Use
  Company Number: US-MYLANLABS-2021M1033096

PATIENT
  Sex: Male
  Weight: 68 kg

DRUGS (4)
  1. FENTANYL TRANSDERMAL SYSTEM [Suspect]
     Active Substance: FENTANYL
     Indication: PAIN
     Dosage: 25 MICROGRAM, QH EVERY 48 HOURS
     Route: 062
  2. DULOXETINE. [Concomitant]
     Active Substance: DULOXETINE
  3. GABAPENTIN. [Concomitant]
     Active Substance: GABAPENTIN
  4. TRAMADOL. [Concomitant]
     Active Substance: TRAMADOL

REACTIONS (1)
  - Drug ineffective [Not Recovered/Not Resolved]

NARRATIVE: CASE EVENT DATE: 2021
